FAERS Safety Report 17033291 (Version 1)
Quarter: 2019Q4

REPORT INFORMATION
  Report Type: Spontaneous
  Country: ES (occurrence: ES)
  Receive Date: 20191114
  Receipt Date: 20191114
  Transmission Date: 20200122
  Serious: Yes (Death, Other)
  Sender: FDA-Public Use
  Company Number: ES-MYLANLABS-2019M1109295

PATIENT
  Age: 52 Year
  Sex: Female

DRUGS (3)
  1. IMATINIB. [Suspect]
     Active Substance: IMATINIB MESYLATE
     Indication: EOSINOPHILIA
     Dosage: 100 MILLIGRAM, QD
     Route: 048
     Dates: start: 2013
  2. IMATINIB. [Suspect]
     Active Substance: IMATINIB MESYLATE
     Indication: PLATELET-DERIVED GROWTH FACTOR RECEPTOR GENE MUTATION
     Dosage: 100 MG, UNK (2 OR 3 TIMES PER WEEK )
     Route: 048
     Dates: end: 2016
  3. IMATINIB. [Suspect]
     Active Substance: IMATINIB MESYLATE
     Indication: MYELOPROLIFERATIVE NEOPLASM
     Dosage: UNK

REACTIONS (2)
  - Metastases to liver [Fatal]
  - Neutropenia [Unknown]

NARRATIVE: CASE EVENT DATE: 2014
